FAERS Safety Report 5887141-7 (Version None)
Quarter: 2008Q3

REPORT INFORMATION
  Report Type: 
  Country: None (occurrence: None)
  Receive Date: 20080917
  Receipt Date: 20080908
  Transmission Date: 20090109
  Serious: Yes (Hospitalization)
  Sender: FDA-Public Use
  Company Number: JP-PFIZER INC-2008076342

PATIENT
  Sex: Female

DRUGS (2)
  1. LIPITOR [Suspect]
     Route: 048
  2. PROGRAF [Suspect]
     Dosage: DAILY DOSE:2MG-FREQ:DAILY
     Route: 048
     Dates: start: 20080101, end: 20080101

REACTIONS (1)
  - GRANULOCYTE COUNT DECREASED [None]
